FAERS Safety Report 9215051 (Version 1)
Quarter: 2013Q2

REPORT INFORMATION
  Report Type: Spontaneous
  Country: US (occurrence: US)
  Receive Date: 20130405
  Receipt Date: 20130405
  Transmission Date: 20140414
  Serious: No
  Sender: FDA-Public Use
  Company Number: US-FOUGERA-2012FO001089

PATIENT
  Age: 28 Year
  Sex: Female
  Weight: 54.43 kg

DRUGS (2)
  1. FLUOCINONIDE [Suspect]
     Indication: ECZEMA
     Route: 061
     Dates: start: 201111, end: 201205
  2. MULTIVITAMINS [Concomitant]
     Indication: PRODUCT USED FOR UNKNOWN INDICATION

REACTIONS (3)
  - Condition aggravated [Not Recovered/Not Resolved]
  - Erythema [Not Recovered/Not Resolved]
  - Pain of skin [Not Recovered/Not Resolved]
